FAERS Safety Report 6139373-0 (Version None)
Quarter: 2009Q2

REPORT INFORMATION
  Report Type: 
  Country: None (occurrence: None)
  Receive Date: 20090401
  Receipt Date: 20090324
  Transmission Date: 20091009
  Serious: Yes (Death)
  Sender: FDA-Public Use
  Company Number: US-ROCHE-618146

PATIENT
  Sex: Male

DRUGS (2)
  1. XELODA [Suspect]
     Indication: COLON CANCER
     Dosage: DOSE: 150 AND 500, FOUR TIMES A DAY
     Route: 065
     Dates: start: 20090220
  2. ZOFRAN [Concomitant]

REACTIONS (1)
  - DEATH [None]
